FAERS Safety Report 9738985 (Version 2)
Quarter: 2013Q4

REPORT INFORMATION
  Report Type: Spontaneous
  Country: AT (occurrence: AT)
  Receive Date: 20131209
  Receipt Date: 20131231
  Transmission Date: 20140711
  Serious: No
  Sender: FDA-Public Use
  Company Number: PHHY2013AT143212

PATIENT
  Sex: 0

DRUGS (1)
  1. TASIGNA [Suspect]
     Dosage: 2 X 400 MG IN THE MORNING
     Route: 048

REACTIONS (1)
  - Accidental overdose [Unknown]
